FAERS Safety Report 5732849-7 (Version None)
Quarter: 2008Q2

REPORT INFORMATION
  Report Type: 
  Country: None (occurrence: None)
  Receive Date: 20080507
  Receipt Date: 20080507
  Transmission Date: 20081010
  Serious: Yes (Life-Threatening)
  Sender: FDA-Public Use
  Company Number: None

PATIENT
  Age: 56 Year
  Sex: Male
  Weight: 81.6475 kg

DRUGS (1)
  1. CHANTIX [Suspect]
     Indication: SMOKING CESSATION THERAPY
     Dosage: 1 2XDAY PO
     Route: 048
     Dates: start: 20080320, end: 20080506

REACTIONS (3)
  - ANGER [None]
  - HOSTILITY [None]
  - SUICIDAL IDEATION [None]
